FAERS Safety Report 14245650 (Version 1)
Quarter: 2017Q4

REPORT INFORMATION
  Report Type: Spontaneous
  Country: FR (occurrence: FR)
  Receive Date: 20171203
  Receipt Date: 20171203
  Transmission Date: 20180321
  Serious: Yes (Death, Other)
  Sender: FDA-Public Use
  Company Number: FR-CIPLA LTD.-2017FR21747

PATIENT

DRUGS (8)
  1. CARBOPLATIN. [Suspect]
     Active Substance: CARBOPLATIN
     Dosage: UNK, HIGH DOSE CHEMOTHERAPY
     Route: 065
  2. IFOSFAMIDE. [Suspect]
     Active Substance: IFOSFAMIDE
     Indication: CHOROID PLEXUS CARCINOMA
     Dosage: UNK, 6 CYCLES
     Route: 065
  3. VINCRISTINE [Suspect]
     Active Substance: VINCRISTINE
     Indication: CHOROID PLEXUS CARCINOMA
     Dosage: UNK, 2 CYCLES
     Route: 065
  4. THIOTEPA. [Suspect]
     Active Substance: THIOTEPA
     Indication: CHOROID PLEXUS CARCINOMA
     Dosage: UNK, HIGH DOSE CHEMOTHERAPY
     Route: 065
  5. CARBOPLATIN. [Suspect]
     Active Substance: CARBOPLATIN
     Indication: CHOROID PLEXUS CARCINOMA
     Dosage: UNK, 6 CYCLES
     Route: 065
  6. CYCLOPHOSPHAMIDE. [Suspect]
     Active Substance: CYCLOPHOSPHAMIDE
     Indication: CHOROID PLEXUS CARCINOMA
     Dosage: UNK, 2 CYCLES
     Route: 065
  7. ETOPOSIDE. [Suspect]
     Active Substance: ETOPOSIDE
     Indication: CHOROID PLEXUS CARCINOMA
     Dosage: UNK, 6 CYCLES
     Route: 065
  8. ACTINOMYCIN D [Suspect]
     Active Substance: DACTINOMYCIN
     Indication: CHOROID PLEXUS CARCINOMA
     Dosage: UNK, 2 CYCLES
     Route: 065

REACTIONS (2)
  - Death [Fatal]
  - Disease progression [Unknown]
